FAERS Safety Report 4758594-2 (Version None)
Quarter: 2005Q3

REPORT INFORMATION
  Report Type: 
  Country: None (occurrence: None)
  Receive Date: 20050901
  Receipt Date: 20050822
  Transmission Date: 20060218
  Serious: Yes (Other)
  Sender: FDA-Public Use
  Company Number: GB-JNJFOC-20050702814

PATIENT
  Sex: Female
  Weight: 70 kg

DRUGS (5)
  1. RISPERDAL CONSTA [Suspect]
     Indication: SCHIZOPHRENIA
     Route: 030
  2. LUSTRAL [Concomitant]
     Indication: OBSESSIVE-COMPULSIVE DISORDER
     Route: 048
  3. LUSTRAL [Concomitant]
     Indication: DEPRESSION
     Route: 048
  4. VALPROATE SODIUM [Concomitant]
  5. ZIMOVANE [Concomitant]
     Dosage: TAKEN PRN

REACTIONS (3)
  - BLOOD PROLACTIN INCREASED [None]
  - BREAST CANCER [None]
  - BREAST DISCHARGE [None]
